FAERS Safety Report 9122369 (Version 1)
Quarter: 2013Q1

REPORT INFORMATION
  Report Type: Spontaneous
  Country: DK (occurrence: DK)
  Receive Date: 20130114
  Receipt Date: 20130114
  Transmission Date: 20140127
  Serious: Yes (Hospitalization)
  Sender: FDA-Public Use
  Company Number: DK-ELI_LILLY_AND_COMPANY-DK201301003564

PATIENT
  Age: 83 Year
  Sex: Male
  Weight: 70 kg

DRUGS (4)
  1. PRASUGREL HYDROCHLORIDE [Suspect]
     Indication: STENT PLACEMENT
     Dosage: 60 MG, SINGLE
     Dates: start: 20101204, end: 20101204
  2. PRASUGREL HYDROCHLORIDE [Suspect]
     Dosage: 5 MG, QD
     Dates: start: 20101205, end: 20110629
  3. ACETYLSALICYLIC ACID [Concomitant]
     Dosage: 1 DF, SINGLE
  4. ACETYLSALICYLIC ACID [Concomitant]
     Dosage: 100 MG, QD

REACTIONS (2)
  - Acute myocardial infarction [Recovered/Resolved]
  - Coronary artery restenosis [Recovered/Resolved]
